FAERS Safety Report 4924665-0 (Version None)
Quarter: 2006Q1

REPORT INFORMATION
  Report Type: 
  Country: None (occurrence: None)
  Receive Date: 20060222
  Receipt Date: 20060209
  Transmission Date: 20060701
  Serious: Yes (Life-Threatening, Hospitalization)
  Sender: FDA-Public Use
  Company Number: DE-2006-001741

PATIENT
  Age: 39 Year
  Sex: Female

DRUGS (1)
  1. MIRENA [Suspect]
     Indication: CONTRACEPTION
     Dosage: 20 UG/DAY, CONT, INTRA-UTERINE
     Route: 015
     Dates: start: 20051212

REACTIONS (23)
  - ABDOMINAL DISTENSION [None]
  - CANDIDIASIS [None]
  - DIARRHOEA [None]
  - DISSEMINATED INTRAVASCULAR COAGULATION [None]
  - ENDOMETRITIS [None]
  - ESCHERICHIA INFECTION [None]
  - GENERAL PHYSICAL HEALTH DETERIORATION [None]
  - HEADACHE [None]
  - HEPATIC FAILURE [None]
  - HEPATOMEGALY [None]
  - HYPONATRAEMIA [None]
  - HYPOVENTILATION [None]
  - INFLAMMATION [None]
  - IUCD COMPLICATION [None]
  - LUNG INFILTRATION [None]
  - LYMPHADENOPATHY [None]
  - NAUSEA [None]
  - OVARIAN CYST [None]
  - PLEURAL EFFUSION [None]
  - SALPINGITIS [None]
  - SEPTIC SHOCK [None]
  - SPLENOMEGALY [None]
  - STREPTOCOCCAL SEPSIS [None]
